FAERS Safety Report 19088720 (Version 1)
Quarter: 2021Q2

REPORT INFORMATION
  Report Type: Spontaneous
  Country: US (occurrence: US)
  Receive Date: 20210403
  Receipt Date: 20210403
  Transmission Date: 20210717
  Serious: No
  Sender: FDA-Public Use
  Company Number: US-ABBVIE-21K-163-3835921-00

PATIENT
  Age: 32 Year

DRUGS (1)
  1. ORILISSA [Suspect]
     Active Substance: ELAGOLIX SODIUM
     Indication: ENDOMETRIOSIS
     Route: 048
     Dates: start: 201905

REACTIONS (2)
  - Liver function test abnormal [Unknown]
  - Pelvic pain [Unknown]

NARRATIVE: CASE EVENT DATE: 2021
